FAERS Safety Report 5616269-1 (Version None)
Quarter: 2008Q1

REPORT INFORMATION
  Report Type: 
  Country: None (occurrence: None)
  Receive Date: 20080204
  Receipt Date: 20080129
  Transmission Date: 20080703
  Serious: Yes (Other)
  Sender: FDA-Public Use
  Company Number: 2007337335

PATIENT
  Age: 42 Year
  Sex: Male

DRUGS (2)
  1. VISINE EYE DROPS [Suspect]
     Indication: DRY EYE
     Dosage: 2 DROPS PER EYE, OPHTHALMIC
     Route: 047
     Dates: start: 20071205
  2. HYZAAR [Concomitant]

REACTIONS (2)
  - EYE IRRITATION [None]
  - OCULAR HYPERAEMIA [None]
